FAERS Safety Report 16403502 (Version 1)
Quarter: 2019Q2

REPORT INFORMATION
  Report Type: Spontaneous
  Country: US (occurrence: US)
  Receive Date: 20190607
  Receipt Date: 20190607
  Transmission Date: 20190711
  Serious: Yes (Other)
  Sender: FDA-Public Use
  Company Number: US-SA-2019SA154023

PATIENT
  Sex: Male

DRUGS (1)
  1. CERDELGA [Suspect]
     Active Substance: ELIGLUSTAT
     Indication: GAUCHER^S DISEASE
     Dosage: 84 MG, BID
     Route: 065
     Dates: start: 200611

REACTIONS (3)
  - Abdominal pain [Unknown]
  - Diverticulitis [Not Recovered/Not Resolved]
  - Pancreatic mass [Unknown]

NARRATIVE: CASE EVENT DATE: 201905
